FAERS Safety Report 5238086-7 (Version None)
Quarter: 2007Q1

REPORT INFORMATION
  Report Type: 
  Country: None (occurrence: None)
  Receive Date: 20070215
  Receipt Date: 20070201
  Transmission Date: 20070707
  Serious: Yes (Other)
  Sender: FDA-Public Use
  Company Number: US-KINGPHARMUSA00001-K200700125

PATIENT

DRUGS (1)
  1. SEPTRA [Suspect]
     Indication: ANTIFUNGAL PROPHYLAXIS

REACTIONS (19)
  - BRONCHIECTASIS [None]
  - BRONCHIOLITIS [None]
  - CONJUNCTIVITIS [None]
  - COUGH [None]
  - DYSPNOEA EXERTIONAL [None]
  - EOSINOPHILIC PNEUMONIA [None]
  - EPIDERMAL NECROSIS [None]
  - ERYTHEMA MULTIFORME [None]
  - LUNG ABSCESS [None]
  - MUCOSAL INFLAMMATION [None]
  - MULTIFOCAL MICRONODULAR PNEUMOCYTE HYPERPLASIA [None]
  - OBSTRUCTIVE AIRWAYS DISORDER [None]
  - PARAINFLUENZAE VIRUS INFECTION [None]
  - RASH [None]
  - RASH ERYTHEMATOUS [None]
  - RASH MACULO-PAPULAR [None]
  - RHONCHI [None]
  - STEVENS-JOHNSON SYNDROME [None]
  - WHEEZING [None]
